FAERS Safety Report 6968323-X (Version None)
Quarter: 2010Q3

REPORT INFORMATION
  Report Type: 
  Country: None (occurrence: None)
  Receive Date: 20100907
  Receipt Date: 20100827
  Transmission Date: 20110219
  Serious: Yes (Other)
  Sender: FDA-Public Use
  Company Number: DK-JNJFOC-20100808726

PATIENT
  Sex: Female

DRUGS (1)
  1. CONCERTA [Suspect]
     Indication: ATTENTION DEFICIT/HYPERACTIVITY DISORDER
     Route: 065

REACTIONS (12)
  - AGGRESSION [None]
  - ANXIETY [None]
  - BALANCE DISORDER [None]
  - DECREASED APPETITE [None]
  - DELUSION [None]
  - DRY MOUTH [None]
  - HALLUCINATION [None]
  - MYDRIASIS [None]
  - PALPITATIONS [None]
  - PSYCHOMOTOR HYPERACTIVITY [None]
  - SUICIDAL IDEATION [None]
  - SYNCOPE [None]
